FAERS Safety Report 18051765 (Version 2)
Quarter: 2020Q3

REPORT INFORMATION
  Report Type: Other
  Country: CA (occurrence: CA)
  Receive Date: 20200722
  Receipt Date: 20200930
  Transmission Date: 20201103
  Serious: Yes (Other)
  Sender: FDA-Public Use
  Company Number: CA-ROCHE-2631926

PATIENT
  Age: 47 Year
  Sex: Male

DRUGS (27)
  1. XOLAIR [Suspect]
     Active Substance: OMALIZUMAB
     Route: 058
     Dates: start: 20181114
  2. XOLAIR [Suspect]
     Active Substance: OMALIZUMAB
     Route: 058
     Dates: start: 20190329
  3. XOLAIR [Suspect]
     Active Substance: OMALIZUMAB
     Dosage: , , , ,,,, , , 21/OCT/2019, //2019, 16/DEC/2019, 13/JAN/2020, 27/JAN/2020 AND 10/FEB/2020
     Route: 058
     Dates: start: 20190923
  4. XOLAIR [Suspect]
     Active Substance: OMALIZUMAB
     Dosage: ,  AND 10/FEB/2020
     Route: 058
     Dates: start: 20200127
  5. XOLAIR [Suspect]
     Active Substance: OMALIZUMAB
     Route: 058
     Dates: start: 20181003
  6. XOLAIR [Suspect]
     Active Substance: OMALIZUMAB
     Route: 058
     Dates: start: 20190220
  7. XOLAIR [Suspect]
     Active Substance: OMALIZUMAB
     Route: 058
     Dates: start: 20190508
  8. XOLAIR [Suspect]
     Active Substance: OMALIZUMAB
     Route: 058
     Dates: start: 20200210
  9. AVAMIS [Concomitant]
     Active Substance: FLUTICASONE FUROATE
     Indication: PRODUCT USED FOR UNKNOWN INDICATION
     Route: 045
     Dates: start: 20180621
  10. XOLAIR [Suspect]
     Active Substance: OMALIZUMAB
     Route: 058
     Dates: start: 20190424
  11. XOLAIR [Suspect]
     Active Substance: OMALIZUMAB
     Route: 058
     Dates: start: 20190521
  12. XOLAIR [Suspect]
     Active Substance: OMALIZUMAB
     Dosage: , , , ,,,, , 23/SEP/2019, 21/OCT/2019, //2019, 16/DEC/2019, 13/JAN/2020, 27/JAN/2020 AND 10/FEB/2020
     Route: 058
  13. XOLAIR [Suspect]
     Active Substance: OMALIZUMAB
     Dosage: , , , ,,,, , , , //2019, 16/DEC/2019, 13/JAN/2020, 27/JAN/2020 AND 10/FEB/2020
     Route: 058
     Dates: start: 2019
  14. XOLAIR [Suspect]
     Active Substance: OMALIZUMAB
     Dosage: , 27/JAN/2020 AND 10/FEB/2020
     Route: 058
     Dates: start: 20200113
  15. SINGULAIR [Concomitant]
     Active Substance: MONTELUKAST SODIUM
     Indication: PRODUCT USED FOR UNKNOWN INDICATION
     Route: 048
     Dates: start: 20170321
  16. XOLAIR [Suspect]
     Active Substance: OMALIZUMAB
     Route: 058
     Dates: start: 20181128
  17. SYMBICORT [Concomitant]
     Active Substance: BUDESONIDE\FORMOTEROL FUMARATE DIHYDRATE
     Indication: PRODUCT USED FOR UNKNOWN INDICATION
     Route: 055
     Dates: start: 20140115
  18. XOLAIR [Suspect]
     Active Substance: OMALIZUMAB
     Route: 058
     Dates: start: 20190605
  19. INFLUENZA VACCINE [Suspect]
     Active Substance: INFLUENZA VIRUS VACCINE
     Indication: PRODUCT USED FOR UNKNOWN INDICATION
     Route: 065
     Dates: start: 20191022
  20. SPIRIVA [Concomitant]
     Active Substance: TIOTROPIUM BROMIDE MONOHYDRATE
     Indication: PRODUCT USED FOR UNKNOWN INDICATION
     Route: 055
     Dates: start: 20180322
  21. XOLAIR [Suspect]
     Active Substance: OMALIZUMAB
     Dosage: , , , ,,,, , , , //2019, 16/DEC/2019, 13/JAN/2020, 27/JAN/2020 AND 10/FEB/2020
     Route: 058
     Dates: start: 20191021
  22. XOLAIR [Suspect]
     Active Substance: OMALIZUMAB
     Dosage: 13/JAN/2020, 27/JAN/2020 AND 10/FEB/2020
     Route: 058
     Dates: start: 20191216
  23. XOLAIR [Suspect]
     Active Substance: OMALIZUMAB
     Route: 058
  24. XOLAIR [Suspect]
     Active Substance: OMALIZUMAB
     Route: 058
     Dates: start: 20190410
  25. XOLAIR [Suspect]
     Active Substance: OMALIZUMAB
     Indication: ASTHMA
     Route: 058
     Dates: start: 20180904
  26. XOLAIR [Suspect]
     Active Substance: OMALIZUMAB
     Route: 058
     Dates: start: 20190617
  27. VENTOLIN [Concomitant]
     Active Substance: ALBUTEROL SULFATE
     Indication: PRODUCT USED FOR UNKNOWN INDICATION
     Route: 055

REACTIONS (32)
  - Injection site discomfort [Not Recovered/Not Resolved]
  - Joint swelling [Unknown]
  - Productive cough [Not Recovered/Not Resolved]
  - Hypertension [Unknown]
  - Injection site pain [Recovering/Resolving]
  - Perfume sensitivity [Recovered/Resolved]
  - Allergy to plants [Unknown]
  - Visual impairment [Unknown]
  - Central vision loss [Unknown]
  - Lacrimation increased [Not Recovered/Not Resolved]
  - Eye pruritus [Not Recovered/Not Resolved]
  - Asthma [Recovering/Resolving]
  - Peripheral swelling [Not Recovered/Not Resolved]
  - Hyperhidrosis [Unknown]
  - Headache [Unknown]
  - Eye swelling [Not Recovered/Not Resolved]
  - Wheezing [Recovered/Resolved]
  - Pharyngitis [Recovering/Resolving]
  - Neck pain [Unknown]
  - Seasonal allergy [Recovering/Resolving]
  - Chest discomfort [Unknown]
  - Dyspnoea exertional [Not Recovered/Not Resolved]
  - Dyspnoea [Recovered/Resolved]
  - Arthralgia [Unknown]
  - Cough [Unknown]
  - Retinal detachment [Unknown]
  - Rhinorrhoea [Unknown]
  - Dyspnoea at rest [Not Recovered/Not Resolved]
  - Nasopharyngitis [Recovering/Resolving]
  - Pain in extremity [Not Recovered/Not Resolved]
  - Pruritus [Recovered/Resolved]
  - Wheezing [Unknown]

NARRATIVE: CASE EVENT DATE: 20180904
